FAERS Safety Report 4430137-2 (Version None)
Quarter: 2004Q3

REPORT INFORMATION
  Report Type: 
  Country: None (occurrence: None)
  Receive Date: 20040820
  Receipt Date: 20040816
  Transmission Date: 20050211
  Serious: Yes (Hospitalization)
  Sender: FDA-Public Use
  Company Number: GB-ROCHE-377838

PATIENT
  Age: 64 Year
  Sex: Female

DRUGS (5)
  1. NAPROXEN [Suspect]
     Route: 048
     Dates: end: 20040703
  2. ACETAMINOPHEN [Concomitant]
     Dosage: PRN.
     Route: 048
  3. DIAZEPAM [Concomitant]
     Indication: ANXIETY
     Route: 048
  4. SUDAFED S.A. [Concomitant]
     Indication: NASAL DECONGESTION THERAPY
     Dosage: FREQUENCY: ON
     Route: 048
  5. CODEINE PHOSPHATE [Concomitant]
     Route: 048

REACTIONS (2)
  - FAECES DISCOLOURED [None]
  - RECTAL HAEMORRHAGE [None]
